FAERS Safety Report 22630521 (Version 2)
Quarter: 2023Q2

REPORT INFORMATION
  Report Type: Spontaneous
  Country: DK (occurrence: DK)
  Receive Date: 20230622
  Receipt Date: 20230628
  Transmission Date: 20230721
  Serious: Yes (Death, Other)
  Sender: FDA-Public Use
  Company Number: None

PATIENT
  Age: 71 Year
  Sex: Female
  Weight: 67 kg

DRUGS (6)
  1. YERVOY [Suspect]
     Active Substance: IPILIMUMAB
     Indication: Malignant melanoma
     Dosage: DOSAGE: 180 MG WITH UNKNOWN INTERVAL. 3RD SERIES WAS GIVEN ON 14NOV2022, STRENGTH: 5 MG/ML
     Route: 042
     Dates: start: 20220912
  2. YERVOY [Suspect]
     Active Substance: IPILIMUMAB
     Dosage: DOSAGE: 180 MG WITH UNKNOWN INTERVAL. 3RD SERIES WAS GIVEN ON 14NOV2022, STRENGTH: 5 MG/ML
     Route: 042
     Dates: start: 20221114
  3. OPDIVO [Suspect]
     Active Substance: NIVOLUMAB
     Indication: Malignant melanoma
     Dosage: DOSAGE: 63.3 MG WITH UNKNOWN INTERVAL, 3RD SERIES WAS GIVEN ON 14NOV2022, STRENGTH: UNKNOWN.
     Route: 042
     Dates: start: 20220912
  4. OPDIVO [Suspect]
     Active Substance: NIVOLUMAB
     Dosage: DOSAGE: 63.3 MG WITH UNKNOWN INTERVAL, 3RD SERIES WAS GIVEN ON 14NOV2022, STRENGTH: UNKNOWN.
     Route: 042
     Dates: start: 20221114
  5. ACETAMINOPHEN [Concomitant]
     Active Substance: ACETAMINOPHEN
     Indication: Pain
     Dates: start: 20140715
  6. MORPHINE [Concomitant]
     Active Substance: MORPHINE
     Indication: Pain
     Dates: start: 20221118

REACTIONS (10)
  - Immune-mediated hypothyroidism [Fatal]
  - Immune-mediated lung disease [Fatal]
  - Immune-mediated adrenal insufficiency [Fatal]
  - Brain death [Fatal]
  - Altered state of consciousness [Fatal]
  - Immune-mediated encephalitis [Fatal]
  - Cardiac arrest [Fatal]
  - Immune-mediated hepatitis [Fatal]
  - Respiratory rate decreased [Fatal]
  - Prescribed underdose [Unknown]

NARRATIVE: CASE EVENT DATE: 20221101
